FAERS Safety Report 6242482-9 (Version None)
Quarter: 2009Q2

REPORT INFORMATION
  Report Type: 
  Country: None (occurrence: None)
  Receive Date: 20090624
  Receipt Date: 20090622
  Transmission Date: 20091009
  Serious: No
  Sender: FDA-Public Use
  Company Number: US-B.I. PHARMACEUTICALS,INC./RIDGEFIELD-2009-BP-07541BP

PATIENT
  Sex: Male

DRUGS (2)
  1. MIRAPEX [Suspect]
     Indication: PARKINSON'S DISEASE
     Dosage: 3 MG
     Route: 048
     Dates: start: 20060101
  2. AZILECT [Concomitant]
     Indication: PARKINSON'S DISEASE

REACTIONS (1)
  - DIZZINESS [None]
